FAERS Safety Report 4788265-8 (Version None)
Quarter: 2005Q4

REPORT INFORMATION
  Report Type: 
  Country: None (occurrence: None)
  Receive Date: 20051003
  Receipt Date: 20050920
  Transmission Date: 20060501
  Serious: Yes (Hospitalization, Disabling, Other)
  Sender: FDA-Public Use
  Company Number: 2003114592

PATIENT
  Age: 44 Year
  Sex: Female
  Weight: 162 kg

DRUGS (8)
  1. GEODON [Suspect]
     Indication: SCHIZOAFFECTIVE DISORDER
     Dosage: 80 MG (DAILY), ORAL
     Route: 048
  2. XANAX [Suspect]
     Indication: ANXIETY
     Dates: start: 19920101, end: 20040401
  3. LEXAPRO [Suspect]
     Indication: DEPRESSION
     Dates: start: 20030101, end: 20050901
  4. TOPAMAX [Suspect]
     Indication: AFFECT LABILITY
     Dosage: 100 MG
     Dates: start: 20040301, end: 20040301
  5. PROZAC [Suspect]
     Indication: DEPRESSION
     Dosage: 40 MG (QD INTERVAL: EVERY  DAY)
     Dates: start: 20050901
  6. CYMBALTA [Suspect]
     Indication: ILL-DEFINED DISORDER
     Dates: start: 20040801
  7. CLIMARA [Concomitant]
  8. ADDERALL 10 [Concomitant]

REACTIONS (36)
  - ABASIA [None]
  - ABNORMAL BEHAVIOUR [None]
  - BRADYPHRENIA [None]
  - CHOLELITHIASIS [None]
  - COORDINATION ABNORMAL [None]
  - DEPRESSION [None]
  - DIPLEGIA [None]
  - DISORIENTATION [None]
  - DIZZINESS [None]
  - DRUG DEPENDENCE [None]
  - DRUG INTERACTION [None]
  - DRUG WITHDRAWAL SYNDROME [None]
  - DRY MOUTH [None]
  - DYSARTHRIA [None]
  - FEELING ABNORMAL [None]
  - FEELING COLD [None]
  - GAIT DISTURBANCE [None]
  - GLOSSODYNIA [None]
  - HALLUCINATION [None]
  - HEADACHE [None]
  - HOT FLUSH [None]
  - HYPERHIDROSIS [None]
  - IMPAIRED WORK ABILITY [None]
  - MAJOR DEPRESSION [None]
  - MENTAL DISORDER [None]
  - MOOD SWINGS [None]
  - ORAL PAIN [None]
  - PANIC ATTACK [None]
  - PARANOIA [None]
  - PHOTOPHOBIA [None]
  - PHOTOPSIA [None]
  - PSYCHOTIC DISORDER [None]
  - SCHIZOAFFECTIVE DISORDER [None]
  - SJOGREN'S SYNDROME [None]
  - STUPOR [None]
  - SUICIDAL IDEATION [None]
